FAERS Safety Report 22531320 (Version 1)
Quarter: 2023Q2

REPORT INFORMATION
  Report Type: Report from Study
  Country: DE (occurrence: DE)
  Receive Date: 20230607
  Receipt Date: 20230607
  Transmission Date: 20230721
  Serious: Yes (Death, Hospitalization, Other)
  Sender: FDA-Public Use
  Company Number: None

PATIENT
  Age: 58 Year
  Sex: Male

DRUGS (7)
  1. METHOTREXATE [Suspect]
     Active Substance: METHOTREXATE
     Indication: Rheumatoid arthritis
     Dates: end: 202202
  2. TOCILIZUMAB [Suspect]
     Active Substance: TOCILIZUMAB
     Indication: Rheumatoid arthritis
     Dates: start: 201701, end: 201705
  3. BARICITINIB [Suspect]
     Active Substance: BARICITINIB
     Indication: Rheumatoid arthritis
     Dates: start: 201705, end: 201805
  4. ABATACEPT [Suspect]
     Active Substance: ABATACEPT
     Indication: Rheumatoid arthritis
     Dates: start: 20220127
  5. BARICITINIB [Suspect]
     Active Substance: BARICITINIB
     Indication: Rheumatoid arthritis
     Dates: start: 201806, end: 20220126
  6. ABATACEPT [Suspect]
     Active Substance: ABATACEPT
     Indication: Rheumatoid arthritis
     Dates: start: 201601
  7. METHOTREXATE [Suspect]
     Active Substance: METHOTREXATE
     Indication: Rheumatoid arthritis

REACTIONS (10)
  - Multiple organ dysfunction syndrome [Fatal]
  - Pulmonary fibrosis [Unknown]
  - Cardiogenic shock [Fatal]
  - Acute kidney injury [Unknown]
  - Cardiac failure [Fatal]
  - Bursitis [Unknown]
  - Gastroenteritis [Recovered/Resolved]
  - Pneumocystis jirovecii pneumonia [Fatal]
  - Sepsis [Fatal]
  - Anaemia [Unknown]

NARRATIVE: CASE EVENT DATE: 20220205
